FAERS Safety Report 23576429 (Version 2)
Quarter: 2024Q1

REPORT INFORMATION
  Report Type: Spontaneous
  Country: US (occurrence: US)
  Receive Date: 20240228
  Receipt Date: 20240306
  Transmission Date: 20240410
  Serious: No
  Sender: FDA-Public Use
  Company Number: US-PFIZER INC-202400052058

PATIENT
  Age: 70 Year
  Sex: Female
  Weight: 77.11 kg

DRUGS (2)
  1. CLEOCIN [Suspect]
     Active Substance: CLINDAMYCIN PHOSPHATE
     Indication: Dental implantation
     Dosage: FOR A WEEK
     Route: 048
  2. CLEOCIN [Suspect]
     Active Substance: CLINDAMYCIN PHOSPHATE
     Dosage: 4 TIMES A DAY
     Route: 048
     Dates: start: 20240212, end: 20240219

REACTIONS (2)
  - Dysgeusia [Not Recovered/Not Resolved]
  - Off label use [Unknown]
